FAERS Safety Report 24091218 (Version 4)
Quarter: 2024Q4

REPORT INFORMATION
  Report Type: Spontaneous
  Country: US (occurrence: US)
  Receive Date: 20240715
  Receipt Date: 20241003
  Transmission Date: 20250114
  Serious: No
  Sender: PFIZER
  Company Number: US-PFIZER INC-202400209920

PATIENT
  Age: 1 Year
  Sex: Female
  Weight: 12.245 kg

DRUGS (2)
  1. GENOTROPIN [Suspect]
     Active Substance: SOMATROPIN
     Indication: Prader-Willi syndrome
     Dosage: 0.6 MG, ALTERNATE DAY (ALTERNATES BETWEEN 0.6 MG AND 0.7 MG, 6 NIGHTS A WEEK)
     Route: 030
     Dates: start: 202301
  2. GENOTROPIN [Suspect]
     Active Substance: SOMATROPIN
     Dosage: 0.7 MG, ALTERNATE DAY (ALTERNATES BETWEEN 0.6 MG AND 0.7 MG, 6 NIGHTS A WEEK)
     Route: 030
     Dates: start: 202301

REACTIONS (5)
  - Device breakage [Unknown]
  - Device issue [Unknown]
  - Poor quality device used [Unknown]
  - Drug dose omission by device [Unknown]
  - Product use issue [Unknown]

NARRATIVE: CASE EVENT DATE: 20230101
